FAERS Safety Report 23553678 (Version 3)
Quarter: 2024Q4

REPORT INFORMATION
  Report Type: Report from Study
  Country: CA (occurrence: CA)
  Receive Date: 20240222
  Receipt Date: 20241119
  Transmission Date: 20250114
  Serious: Yes (Hospitalization, Other)
  Sender: VIFOR (INTERNATIONAL) INC.
  Company Number: CA-Vifor (International) Inc.-VIT-2024-01520

PATIENT
  Age: 81 Year
  Sex: Male

DRUGS (2)
  1. VELTASSA [Suspect]
     Active Substance: PATIROMER
     Indication: Hyperkalaemia
     Dosage: ON NON-DIALYSIS DAYS
     Route: 048
     Dates: start: 20240130
  2. VELTASSA [Suspect]
     Active Substance: PATIROMER
     Dosage: ONE SACHET
     Route: 048
     Dates: start: 2024

REACTIONS (6)
  - Hospitalisation [Unknown]
  - Pruritus [Not Recovered/Not Resolved]
  - Constipation [Not Recovered/Not Resolved]
  - Diarrhoea [Unknown]
  - Abdominal pain upper [Unknown]
  - Off label use [Unknown]

NARRATIVE: CASE EVENT DATE: 20240101
